FAERS Safety Report 12790917 (Version 2)
Quarter: 2016Q4

REPORT INFORMATION
  Report Type: Spontaneous
  Country: PL (occurrence: PL)
  Receive Date: 20160929
  Receipt Date: 20161026
  Transmission Date: 20170207
  Serious: Yes (Other)
  Sender: FDA-Public Use
  Company Number: PL-SUN PHARMACEUTICAL INDUSTRIES LTD-2016R1-125030

PATIENT
  Age: 75 Year
  Sex: Female

DRUGS (2)
  1. LITHIUM. [Suspect]
     Active Substance: LITHIUM
     Indication: DEPRESSION
     Dosage: 1000 MG, DAILY
     Route: 065
     Dates: start: 1970, end: 1990
  2. LITHIUM. [Suspect]
     Active Substance: LITHIUM
     Dosage: 750 MG, DAILY
     Route: 065
     Dates: start: 1990

REACTIONS (2)
  - Chronic kidney disease [Unknown]
  - Oral herpes [Unknown]

NARRATIVE: CASE EVENT DATE: 2012
